FAERS Safety Report 25169013 (Version 1)
Quarter: 2025Q2

REPORT INFORMATION
  Report Type: Spontaneous
  Country: US (occurrence: None)
  Receive Date: 20250407
  Receipt Date: 20250407
  Transmission Date: 20250716
  Serious: Yes (Other)
  Sender: FDA-CTU
  Company Number: None

PATIENT
  Age: 60 Year
  Sex: Female
  Weight: 96.75 kg

DRUGS (5)
  1. SODIUM FLUORIDE [Suspect]
     Active Substance: SODIUM FLUORIDE
     Indication: Dental care
     Dosage: OTHER QUANTITY : 1 TEASPOON(S);?FREQUENCY : DAILY;?
     Route: 048
     Dates: start: 20250403, end: 20250406
  2. SULFASALAZINE [Concomitant]
     Active Substance: SULFASALAZINE
  3. METHOTREXATE [Concomitant]
     Active Substance: METHOTREXATE
  4. MONTELUKAST [Concomitant]
     Active Substance: MONTELUKAST
  5. Gruns [Concomitant]

REACTIONS (8)
  - Lip swelling [None]
  - Chapped lips [None]
  - Nasal congestion [None]
  - Nasal oedema [None]
  - Pharyngeal swelling [None]
  - Swollen tongue [None]
  - Swelling face [None]
  - Gingival swelling [None]

NARRATIVE: CASE EVENT DATE: 20250403
